FAERS Safety Report 16058104 (Version 2)
Quarter: 2020Q4

REPORT INFORMATION
  Report Type: Report from Study
  Country: GB (occurrence: GB)
  Receive Date: 20190311
  Receipt Date: 20201125
  Transmission Date: 20210113
  Serious: Yes (Hospitalization, Other)
  Sender: FDA-Public Use
  Company Number: GB-JNJFOC-20190236940

PATIENT
  Age: 8 Decade
  Sex: Female

DRUGS (2)
  1. STELARA [Suspect]
     Active Substance: USTEKINUMAB
  2. STELARA [Suspect]
     Active Substance: USTEKINUMAB
     Indication: CROHN^S DISEASE
     Route: 058
     Dates: start: 20171229

REACTIONS (6)
  - Product dose omission issue [Unknown]
  - Bronchitis [Unknown]
  - Pneumonia [Unknown]
  - Mass [Unknown]
  - Feeling abnormal [Unknown]
  - Lip blister [Unknown]

NARRATIVE: CASE EVENT DATE: 201902
